FAERS Safety Report 6019117-3 (Version None)
Quarter: 2008Q4

REPORT INFORMATION
  Report Type: 
  Country: None (occurrence: None)
  Receive Date: 20081224
  Receipt Date: 20081218
  Transmission Date: 20090506
  Serious: Yes (Death, Hospitalization)
  Sender: FDA-Public Use
  Company Number: US-JNJFOC-20081205600

PATIENT
  Age: 15 Year
  Sex: Female

DRUGS (4)
  1. ACETAMINOPHEN [Suspect]
     Route: 048
  2. ACETAMINOPHEN [Suspect]
     Indication: SUICIDE ATTEMPT
     Route: 048
  3. CIPROFLOXACIN HCL [Concomitant]
     Indication: URINARY TRACT INFECTION
  4. POTASSIUM CHLORIDE [Concomitant]
     Indication: HYPOKALAEMIA

REACTIONS (3)
  - ACUTE HEPATIC FAILURE [None]
  - DRUG TOXICITY [None]
  - HYPOTHERMIA [None]
